FAERS Safety Report 16444272 (Version 2)
Quarter: 2019Q2

REPORT INFORMATION
  Report Type: Report from Study
  Country: US (occurrence: US)
  Receive Date: 20190618
  Receipt Date: 20190621
  Transmission Date: 20190711
  Serious: No
  Sender: FDA-Public Use
  Company Number: PHEH2019US025617

PATIENT
  Sex: Female
  Weight: 67.13 kg

DRUGS (1)
  1. TREPROSTINIL. [Suspect]
     Active Substance: TREPROSTINIL
     Indication: PULMONARY ARTERIAL HYPERTENSION
     Dosage: 80 OT (NG/KG/MIN), CONTINUOUS
     Route: 042
     Dates: start: 20190430

REACTIONS (1)
  - Diarrhoea [Unknown]
